FAERS Safety Report 22041143 (Version 1)
Quarter: 2023Q1

REPORT INFORMATION
  Report Type: Spontaneous
  Country: US (occurrence: None)
  Receive Date: 20230224
  Receipt Date: 20230224
  Transmission Date: 20230418
  Serious: Yes (Other)
  Sender: FDA-Public Use
  Company Number: None

PATIENT
  Age: 45 Year
  Sex: Female
  Weight: 117.93 kg

DRUGS (15)
  1. FIASP [Suspect]
     Active Substance: INSULIN ASPART
     Indication: Diabetes mellitus
     Dosage: FREQUENCY : 3 TIMES A DAY;?
     Route: 058
     Dates: start: 20230103, end: 20230224
  2. ATORVASTATIN 80 MG/GLIPIZIDE [Concomitant]
  3. FIASP FLEXTOUCH INSULIN ASPART [Concomitant]
  4. BASAGLAR SLOW ACTING INSULIN 55 [Concomitant]
  5. JANUVIA [Concomitant]
  6. INVEGA SUSTENNA(PALIPERIDONE) [Concomitant]
  7. LEVOTHYROXINE [Concomitant]
     Active Substance: LEVOTHYROXINE
  8. LISINIPRIL [Concomitant]
  9. LITHIUM [Concomitant]
  10. LOXAPINE [Concomitant]
  11. METOPROLOL [Concomitant]
  12. TYLENOL [Concomitant]
  13. ASPIRIN [Concomitant]
  14. UNSPECIFIED INGREDIENT [Concomitant]
     Active Substance: UNSPECIFIED INGREDIENT
  15. ANTIHISTAMINES NOS [Concomitant]
     Active Substance: ANTIHISTAMINES NOS

REACTIONS (3)
  - Anorgasmia [None]
  - Diabetes mellitus inadequate control [None]
  - Sexual dysfunction [None]

NARRATIVE: CASE EVENT DATE: 20230224
